FAERS Safety Report 11868124 (Version 1)
Quarter: 2015Q4

REPORT INFORMATION
  Report Type: Spontaneous
  Country: US (occurrence: None)
  Receive Date: 20151223
  Receipt Date: 20151223
  Transmission Date: 20160305
  Serious: Yes (Other)
  Sender: FDA-Public Use
  Company Number: None

PATIENT
  Age: 60 Year
  Sex: Female
  Weight: 95.26 kg

DRUGS (20)
  1. SYNTHROID [Concomitant]
     Active Substance: LEVOTHYROXINE SODIUM
  2. POTASSIUM CHLORIDE. [Concomitant]
     Active Substance: POTASSIUM CHLORIDE
  3. OMEGA 3 [Concomitant]
     Active Substance: OMEGA-3 FATTY ACIDS
  4. C-PAP MACHINE [Concomitant]
     Active Substance: DEVICE
  5. MIRALAX [Concomitant]
     Active Substance: POLYETHYLENE GLYCOL 3350
  6. VIVELLE DOT ESTROGEN PATCHES [Concomitant]
  7. VITAMIN B12 [Concomitant]
     Active Substance: CYANOCOBALAMIN
  8. CANE WHEN NECESSARY [Concomitant]
  9. CELEXA [Concomitant]
     Active Substance: CITALOPRAM HYDROBROMIDE
  10. BIOTIN [Concomitant]
     Active Substance: BIOTIN
  11. PREDNISONE. [Suspect]
     Active Substance: PREDNISONE
     Indication: NERVE COMPRESSION
     Route: 048
     Dates: start: 20151208, end: 20151210
  12. KLONOPIN [Concomitant]
     Active Substance: CLONAZEPAM
  13. LASIX [Concomitant]
     Active Substance: FUROSEMIDE
  14. PROTONIX [Concomitant]
     Active Substance: PANTOPRAZOLE SODIUM
  15. VITAMIN D [Concomitant]
     Active Substance: CHOLECALCIFEROL
  16. PREDNISONE. [Suspect]
     Active Substance: PREDNISONE
     Indication: RHEUMATOID ARTHRITIS
     Route: 048
     Dates: start: 20151208, end: 20151210
  17. WELLBUTRIN XL [Concomitant]
     Active Substance: BUPROPION HYDROCHLORIDE
  18. ENALAPRIL [Concomitant]
     Active Substance: ENALAPRIL
  19. BABY ASPIRIN [Concomitant]
     Active Substance: ASPIRIN
  20. MECLIZINE [Concomitant]
     Active Substance: MECLIZINE\MECLIZINE HYDROCHLORIDE

REACTIONS (4)
  - Rash [None]
  - Eye swelling [None]
  - Chest discomfort [None]
  - Lip swelling [None]

NARRATIVE: CASE EVENT DATE: 20151210
